FAERS Safety Report 4556559-7 (Version None)
Quarter: 2005Q1

REPORT INFORMATION
  Report Type: 
  Country: None (occurrence: None)
  Receive Date: 20050114
  Receipt Date: 20040315
  Transmission Date: 20050727
  Serious: Yes (Other)
  Sender: FDA-Public Use
  Company Number: 001#0#2004-00057

PATIENT
  Age: 86 Year
  Sex: Female

DRUGS (3)
  1. ISOSORBIDE DINITRATE [Suspect]
     Dosage: 1.280 MG (20 MG 14 IN 1 DAY (S)
     Route: 048
     Dates: start: 20030204, end: 20030204
  2. LEVOMEPROMAZINE (LEVOMEPROMAZINE) [Concomitant]
  3. CELEBREX [Concomitant]

REACTIONS (3)
  - MULTIPLE DRUG OVERDOSE [None]
  - SUICIDE ATTEMPT [None]
  - VOMITING [None]
